FAERS Safety Report 9901778 (Version 2)
Quarter: 2014Q1

REPORT INFORMATION
  Report Type: Spontaneous
  Country: US (occurrence: US)
  Receive Date: 20140217
  Receipt Date: 20140217
  Transmission Date: 20141002
  Serious: No
  Sender: FDA-Public Use
  Company Number: US-GILEAD-2011-0042346

PATIENT
  Age: 74 Year
  Sex: Female
  Weight: 84.37 kg

DRUGS (8)
  1. LETAIRIS [Suspect]
     Indication: PULMONARY HYPERTENSION
     Route: 048
  2. LISINOPRIL [Concomitant]
  3. COUMADIN [Concomitant]
  4. DEXILANT [Concomitant]
  5. NITROFURANTOIN [Concomitant]
  6. CALCITRIOL [Concomitant]
  7. CALCIUM-VITAMIN D [Concomitant]
  8. CENTRUM SILVER [Concomitant]

REACTIONS (1)
  - Petechiae [Recovered/Resolved]
